FAERS Safety Report 5366579-0 (Version None)
Quarter: 2007Q2

REPORT INFORMATION
  Report Type: 
  Country: None (occurrence: None)
  Receive Date: 20070622
  Receipt Date: 20070611
  Transmission Date: 20071010
  Serious: Yes (Other)
  Sender: FDA-Public Use
  Company Number: US-PFIZER INC-2007026092

PATIENT
  Sex: Female
  Weight: 66.2 kg

DRUGS (7)
  1. CHANTIX [Suspect]
     Indication: SMOKING CESSATION THERAPY
     Dates: start: 20070318, end: 20070326
  2. PREMPRO [Concomitant]
  3. CELEBREX [Concomitant]
  4. MULTIVITAMIN [Concomitant]
  5. SPIRIVA [Concomitant]
     Route: 055
  6. SALBUTAMOL [Concomitant]
     Route: 055
  7. PROTONIX [Concomitant]

REACTIONS (11)
  - ABDOMINAL PAIN [None]
  - CATHETERISATION CARDIAC [None]
  - CHEST PAIN [None]
  - DYSPNOEA [None]
  - ERUCTATION [None]
  - FREQUENT BOWEL MOVEMENTS [None]
  - GASTROOESOPHAGEAL REFLUX DISEASE [None]
  - NAUSEA [None]
  - SLEEP DISORDER [None]
  - VOMITING [None]
  - WEIGHT INCREASED [None]
